FAERS Safety Report 9106645 (Version 1)
Quarter: 2013Q1

REPORT INFORMATION
  Report Type: Spontaneous
  Country: MX (occurrence: MX)
  Receive Date: 20130222
  Receipt Date: 20130222
  Transmission Date: 20140127
  Serious: Yes (Disabling, Other)
  Sender: FDA-Public Use
  Company Number: PHHY2009MX68971

PATIENT
  Age: 72 Year
  Sex: Female

DRUGS (4)
  1. CO-DIOVAN [Suspect]
     Indication: HYPERTENSION
     Dosage: 1 DF, (160 MG VALS AND 12.5 MG HCTZ)
     Dates: start: 20041201
  2. EUTIROX [Concomitant]
     Indication: THYROID DISORDER
     Dosage: 1.5 DF, PER DAY
  3. CALCIUM [Concomitant]
     Indication: OSTEOPOROSIS
     Dosage: 2 DF, PER DAY
  4. CALCIUM [Concomitant]
     Dosage: 1 UKN, UNK

REACTIONS (5)
  - Hearing impaired [Not Recovered/Not Resolved]
  - Systemic lupus erythematosus [Unknown]
  - Blood cholesterol abnormal [Unknown]
  - Pollakiuria [Unknown]
  - Insomnia [Unknown]
